FAERS Safety Report 19269108 (Version 1)
Quarter: 2021Q2

REPORT INFORMATION
  Report Type: Spontaneous
  Country: IN (occurrence: IN)
  Receive Date: 20210517
  Receipt Date: 20210517
  Transmission Date: 20210717
  Serious: Yes (Death, Other)
  Sender: FDA-Public Use
  Company Number: IN-PFIZER INC-2020109046

PATIENT
  Age: 53 Year
  Sex: Female
  Weight: 68.2 kg

DRUGS (3)
  1. PALBACE [Suspect]
     Active Substance: PALBOCICLIB
     Indication: BREAST CANCER METASTATIC
     Dosage: 125 MG, 1X/DAY (D1?D21)
     Route: 048
     Dates: start: 20190717
  2. LETALL [Concomitant]
     Dosage: 2.5 MG, 1X/DAY
  3. SHELCAL [Concomitant]
     Active Substance: CALCIUM CARBONATE\CHOLECALCIFEROL
     Dosage: 1X/DAY

REACTIONS (4)
  - Death [Fatal]
  - Cough [Unknown]
  - Pain [Unknown]
  - Red blood cell count decreased [Unknown]

NARRATIVE: CASE EVENT DATE: 20190814
